FAERS Safety Report 19501770 (Version 1)
Quarter: 2021Q3

REPORT INFORMATION
  Report Type: Spontaneous
  Country: US (occurrence: US)
  Receive Date: 20210707
  Receipt Date: 20210707
  Transmission Date: 20211014
  Serious: No
  Sender: FDA-Public Use
  Company Number: None

PATIENT
  Age: 85 Year
  Sex: Female
  Weight: 54.43 kg

DRUGS (1)
  1. ERLOTINIB [Suspect]
     Active Substance: ERLOTINIB
     Indication: LUNG CARCINOMA CELL TYPE UNSPECIFIED STAGE 0
     Route: 048
     Dates: start: 20201231

REACTIONS (7)
  - Pruritus [None]
  - Decreased appetite [None]
  - Madarosis [None]
  - Rash [None]
  - Diarrhoea [None]
  - Taste disorder [None]
  - Alopecia [None]

NARRATIVE: CASE EVENT DATE: 20210130
